FAERS Safety Report 8034041-2 (Version None)
Quarter: 2012Q1

REPORT INFORMATION
  Report Type: 
  Country: None (occurrence: None)
  Receive Date: 20120110
  Receipt Date: 20120105
  Transmission Date: 20120608
  Serious: Yes (Other)
  Sender: FDA-Public Use
  Company Number: US-AMGEN-USASP2012000664

PATIENT
  Age: 59 Year
  Sex: Female

DRUGS (6)
  1. TRASTUZUMAB [Concomitant]
     Dosage: UNK UNK, Q3WK
     Route: 042
  2. FASLODEX                           /01503001/ [Concomitant]
  3. XGEVA [Suspect]
     Indication: METASTASES TO BONE
     Dosage: 120 MG, Q4WK
     Dates: start: 20110525
  4. AVAPRO [Concomitant]
     Indication: PAIN
  5. TEMAZEPAM ACTAVIS [Concomitant]
     Indication: SLEEP DISORDER
  6. ANALGESICS [Concomitant]
     Dosage: UNK UNK, PRN

REACTIONS (1)
  - MOVEMENT DISORDER [None]
